FAERS Safety Report 8881063 (Version 1)
Quarter: 2012Q4

REPORT INFORMATION
  Report Type: 
  Country: FR (occurrence: FR)
  Receive Date: 20121101
  Receipt Date: 20121101
  Transmission Date: 20130627
  Serious: Yes (Hospitalization)
  Sender: FDA-Public Use
  Company Number: FR-PFIZER INC-2012266153

PATIENT
  Age: 17 Year
  Sex: Female

DRUGS (8)
  1. DALACINE [Suspect]
     Indication: SALPINGITIS
     Dosage: 600 mg, 2x/day
     Route: 048
     Dates: start: 20120916, end: 20120916
  2. DOXYCYCLINE HYCLATE [Suspect]
     Indication: SALPINGITIS
     Dosage: 100 mg per day
     Route: 048
     Dates: start: 20120917, end: 20120917
  3. FLAGYL [Concomitant]
     Indication: SALPINGITIS
     Dosage: 500 mg, 3x/day
     Route: 048
     Dates: start: 20120916
  4. GENTAMICIN [Concomitant]
     Indication: SALPINGITIS
     Dosage: 160 mg per day
     Route: 042
     Dates: start: 20120917
  5. DROLEPTAN [Concomitant]
     Indication: NAUSEA
     Dosage: UNK
     Route: 042
     Dates: start: 20120916, end: 20120919
  6. DROLEPTAN [Concomitant]
     Indication: VOMITING
  7. PRIMPERAN [Concomitant]
     Indication: NAUSEA
     Dosage: UNK
     Dates: start: 20120916, end: 20120919
  8. PRIMPERAN [Concomitant]
     Indication: VOMITING

REACTIONS (2)
  - Angioedema [Recovered/Resolved]
  - Angioedema [Recovered/Resolved]
